FAERS Safety Report 8206767-9 (Version None)
Quarter: 2012Q1

REPORT INFORMATION
  Report Type: 
  Country: None (occurrence: None)
  Receive Date: 20120309
  Receipt Date: 20120223
  Transmission Date: 20120608
  Serious: Yes (Other)
  Sender: FDA-Public Use
  Company Number: NO-1190758

PATIENT
  Age: 85 Year
  Sex: Male

DRUGS (2)
  1. TRAVATAN 0.004 % OPHTHALMIC SOLUTION (TRAVATAN) [Suspect]
     Indication: GLAUCOMA
     Dosage: (1 GTT QD OD OPHTHALMIC)
     Route: 047
     Dates: start: 20080101, end: 20100101
  2. XALATAN [Suspect]
     Indication: GLAUCOMA
     Dosage: (1 GTT QD OD OPHTHALMIC)
     Route: 047
     Dates: start: 20070101, end: 20080101

REACTIONS (1)
  - MALIGNANT MELANOMA [None]
